FAERS Safety Report 5031315-4 (Version None)
Quarter: 2006Q2

REPORT INFORMATION
  Report Type: 
  Country: None (occurrence: None)
  Receive Date: 20060616
  Receipt Date: 20060608
  Transmission Date: 20061013
  Serious: Yes (Death)
  Sender: FDA-Public Use
  Company Number: DE-2006-001441

PATIENT
  Age: 67 Year
  Sex: Male
  Weight: 103 kg

DRUGS (4)
  1. MAGNEVIST [Suspect]
     Indication: NUCLEAR MAGNETIC RESONANCE IMAGING
     Dosage: 15 ML, 1 DOSE
     Dates: start: 20060126, end: 20060126
  2. MARCUMAR [Concomitant]
  3. NEXIUM [Concomitant]
  4. PREDNISOLONE [Concomitant]

REACTIONS (2)
  - ANAPHYLACTOID REACTION [None]
  - SHOCK [None]
